FAERS Safety Report 5815082-X (Version None)
Quarter: 2008Q3

REPORT INFORMATION
  Report Type: 
  Country: None (occurrence: None)
  Receive Date: 20080717
  Receipt Date: 20080711
  Transmission Date: 20090109
  Serious: No
  Sender: FDA-Public Use
  Company Number: APP200800643

PATIENT
  Age: 80 Year
  Sex: Female

DRUGS (1)
  1. HEPARIN SODIUM INJECTION [Suspect]
     Indication: CATHETERISATION CARDIAC
     Dosage: ONCE
     Dates: start: 20080711, end: 20080711

REACTIONS (2)
  - DRUG LEVEL ABOVE THERAPEUTIC [None]
  - LABORATORY TEST ABNORMAL [None]
